FAERS Safety Report 22357312 (Version 3)
Quarter: 2023Q2

REPORT INFORMATION
  Report Type: Spontaneous
  Country: US (occurrence: US)
  Receive Date: 20230524
  Receipt Date: 20230616
  Transmission Date: 20230722
  Serious: Yes (Other)
  Sender: FDA-Public Use
  Company Number: US-GILEAD-2023-0629355

PATIENT
  Age: 48 Year
  Sex: Female

DRUGS (2)
  1. VIREAD [Suspect]
     Active Substance: TENOFOVIR DISOPROXIL FUMARATE
     Indication: Chronic hepatitis B
     Dosage: 275 MG, QD
     Route: 065
  2. ENTECAVIR [Concomitant]
     Active Substance: ENTECAVIR
     Dosage: 0.5 MG, QD
     Route: 065

REACTIONS (2)
  - Metabolic syndrome [Recovering/Resolving]
  - Steatohepatitis [Recovering/Resolving]
